FAERS Safety Report 19081939 (Version 1)
Quarter: 2021Q2

REPORT INFORMATION
  Report Type: Spontaneous
  Country: US (occurrence: US)
  Receive Date: 20210401
  Receipt Date: 20210401
  Transmission Date: 20210717
  Serious: Yes (Hospitalization, Other)
  Sender: FDA-Public Use
  Company Number: US-TERSERA THERAPEUTICS LLC-2021TRS001309

PATIENT

DRUGS (3)
  1. PRIALT [Suspect]
     Active Substance: ZICONOTIDE ACETATE
     Indication: PRODUCT USED FOR UNKNOWN INDICATION
     Dosage: 1.5 MCG, UNKNOWN
     Route: 065
  2. PRIALT [Suspect]
     Active Substance: ZICONOTIDE ACETATE
     Dosage: CHANGED TO MINIMUM RATE
     Route: 065
  3. PRIALT [Suspect]
     Active Substance: ZICONOTIDE ACETATE
     Dosage: 1.8 MCG, UNKNOWN
     Route: 065

REACTIONS (1)
  - Urosepsis [Unknown]
